FAERS Safety Report 11192420 (Version 1)
Quarter: 2015Q2

REPORT INFORMATION
  Report Type: Spontaneous
  Country: US (occurrence: None)
  Receive Date: 20150612
  Receipt Date: 20150612
  Transmission Date: 20150821
  Serious: Yes (Other)
  Sender: FDA-Public Use
  Company Number: TPU2015-00238

PATIENT
  Age: 65 Year
  Sex: Male
  Weight: 73.94 kg

DRUGS (4)
  1. LIDOCAINE PATCH [Suspect]
     Active Substance: LIDOCAINE
     Indication: CANCER PAIN
     Route: 061
  2. LIDOCAINE PATCH [Suspect]
     Active Substance: LIDOCAINE
     Indication: NEURALGIA
     Route: 061
  3. MORPHINE [Concomitant]
     Active Substance: MORPHINE
  4. CHEMOTHERAPY (CHEMOTHERAPEUTICS) (UNKNOWN) [Concomitant]
     Active Substance: UNSPECIFIED INGREDIENT

REACTIONS (1)
  - Bone cancer [None]

NARRATIVE: CASE EVENT DATE: 201408
